FAERS Safety Report 4907056-8 (Version None)
Quarter: 2006Q1

REPORT INFORMATION
  Report Type: 
  Country: None (occurrence: None)
  Receive Date: 20060207
  Receipt Date: 20060117
  Transmission Date: 20060701
  Serious: No
  Sender: FDA-Public Use
  Company Number: US_0508120871

PATIENT
  Age: 42 Year
  Sex: Male
  Weight: 117.9 kg

DRUGS (12)
  1. OLANZAPINE [Suspect]
     Indication: SCHIZOPHRENIA
     Dosage: 20 MG
     Dates: start: 19980701, end: 20050315
  2. RISPERDAL [Concomitant]
  3. PAXIL [Concomitant]
  4. NEURONTIN [Concomitant]
  5. COLACE (DOCUSATE SODIUM) [Concomitant]
  6. SEROQUEL [Concomitant]
  7. TRAZODONE HCL [Concomitant]
  8. PROLIXIN [Concomitant]
  9. THORAZINE [Concomitant]
  10. EFFEXOR [Concomitant]
  11. ATIVAN [Concomitant]
  12. ADVAIR DISKUS (FLUTICASONE PROPIONATE, SALMETEROL XINAFOATE) [Concomitant]

REACTIONS (9)
  - BREAST MASS [None]
  - DIABETES MELLITUS [None]
  - GLYCOSYLATED HAEMOGLOBIN INCREASED [None]
  - HAEMATOCHEZIA [None]
  - HEPATIC STEATOSIS [None]
  - HEPATOMEGALY [None]
  - HYPERCHOLESTEROLAEMIA [None]
  - LOW DENSITY LIPOPROTEIN INCREASED [None]
  - WEIGHT INCREASED [None]
